FAERS Safety Report 23069445 (Version 1)
Quarter: 2023Q4

REPORT INFORMATION
  Report Type: Spontaneous
  Country: US (occurrence: US)
  Receive Date: 20231016
  Receipt Date: 20231016
  Transmission Date: 20240109
  Serious: Yes (Hospitalization, Other)
  Sender: FDA-Public Use
  Company Number: US-PFIZER INC-202300319530

PATIENT
  Age: 78 Year
  Sex: Male

DRUGS (2)
  1. INLYTA [Suspect]
     Active Substance: AXITINIB
     Dosage: 5 MG
  2. INLYTA [Suspect]
     Active Substance: AXITINIB
     Dosage: 3 MG, 2X/DAY (THREE 1MG TABLETS ORALLY TWICE DAILY)
     Route: 048
     Dates: start: 20221121, end: 202309

REACTIONS (13)
  - Pulmonary oedema [Recovering/Resolving]
  - Diabetes mellitus [Recovering/Resolving]
  - Blood glucose decreased [Recovering/Resolving]
  - Dyspnoea [Recovering/Resolving]
  - Single functional kidney [Recovering/Resolving]
  - Hypertension [Recovering/Resolving]
  - Hypotension [Recovering/Resolving]
  - Diarrhoea [Recovering/Resolving]
  - Weight decreased [Recovering/Resolving]
  - Fluid retention [Recovering/Resolving]
  - Peripheral swelling [Recovering/Resolving]
  - Gait inability [Recovering/Resolving]
  - General physical condition [Recovering/Resolving]
